FAERS Safety Report 19918420 (Version 1)
Quarter: 2021Q4

REPORT INFORMATION
  Report Type: Spontaneous
  Country: US (occurrence: US)
  Receive Date: 20211004
  Receipt Date: 20211004
  Transmission Date: 20220303
  Serious: Yes (Other)
  Sender: FDA-Public Use
  Company Number: US-MALLINCKRODT PHARMACEUTICALS-T202104473

PATIENT

DRUGS (2)
  1. AMITIZA [Suspect]
     Active Substance: LUBIPROSTONE
     Indication: Irritable bowel syndrome
     Dosage: UNK
     Route: 065
     Dates: start: 2017
  2. AMITIZA [Suspect]
     Active Substance: LUBIPROSTONE
     Indication: Constipation

REACTIONS (1)
  - Disability [Unknown]
